FAERS Safety Report 9720699 (Version 1)
Quarter: 2013Q4

REPORT INFORMATION
  Report Type: Report from Study
  Country: BR (occurrence: BR)
  Receive Date: 20131129
  Receipt Date: 20131129
  Transmission Date: 20140711
  Serious: Yes (Other)
  Sender: FDA-Public Use
  Company Number: PHHY2013BR137952

PATIENT
  Sex: Female
  Weight: 56 kg

DRUGS (12)
  1. SANDOSTATIN LAR [Suspect]
     Indication: NEUROENDOCRINE TUMOUR
     Dosage: 1 DF, EVERY 28 DAYS
  2. OSCAL [Concomitant]
     Indication: BONE DISORDER
     Dosage: UNK UKN, BID AT BREAKFAST AND AT NIGHT
  3. DENYL//CITALOPRAM HYDROBROMIDE [Concomitant]
     Dosage: UNK UKN, QD AT BREAKFAST
  4. JANUVIA [Concomitant]
     Dosage: UNK UKN, QD AT BREAKFAST
  5. COVERSYL [Concomitant]
     Dosage: UNK UKN, QD AT BREAKFAST
  6. ALENDRONATE SODIUM [Concomitant]
     Indication: BONE DISORDER
     Dosage: UNK UKN, QW EVERY FRIDAY
  7. FENOBARBITAL [Concomitant]
     Dosage: UNK UKN, QD AT LUNCH
  8. ATORVASTATIN [Concomitant]
     Dosage: UNK UKN, QD AT LUNCH
  9. ALOIS [Concomitant]
     Dosage: UNK UKN, QD AT NIGHT
  10. PROPANOLOL [Concomitant]
     Dosage: UNK UKN, QD AT NIGHT
  11. GLUCEANA [Concomitant]
     Indication: SUPPLEMENTATION THERAPY
     Dosage: UNK UKN, UNK
  12. GLUCEANA [Concomitant]
     Indication: APPETITE DISORDER

REACTIONS (8)
  - Coma [Recovering/Resolving]
  - Cerebrovascular accident [Recovering/Resolving]
  - Amnesia [Recovering/Resolving]
  - Diabetes mellitus [Recovering/Resolving]
  - Hypertension [Recovering/Resolving]
  - Weight decreased [Recovering/Resolving]
  - Eating disorder [Recovering/Resolving]
  - Decreased appetite [Recovering/Resolving]
